FAERS Safety Report 18922975 (Version 1)
Quarter: 2021Q1

REPORT INFORMATION
  Report Type: Spontaneous
  Country: US (occurrence: US)
  Receive Date: 20210222
  Receipt Date: 20210222
  Transmission Date: 20210420
  Serious: Yes (Hospitalization)
  Sender: FDA-Public Use
  Company Number: None

PATIENT
  Age: 60 Year
  Sex: Male

DRUGS (12)
  1. AMOXICILLIN. [Concomitant]
     Active Substance: AMOXICILLIN
  2. AZITHROMYCIN ANHYDROUS. [Concomitant]
     Active Substance: AZITHROMYCIN ANHYDROUS
  3. IBU [Concomitant]
     Active Substance: IBUPROFEN
  4. VITAMIN B12 [Concomitant]
     Active Substance: CYANOCOBALAMIN
  5. TEMODAR [Concomitant]
     Active Substance: TEMOZOLOMIDE
  6. VITAMIN D [Concomitant]
     Active Substance: VITAMIN D NOS
  7. AMLODIPINE [Concomitant]
     Active Substance: AMLODIPINE BESYLATE
  8. ASA [Concomitant]
     Active Substance: ASPIRIN
  9. ONDANSETRON [Concomitant]
     Active Substance: ONDANSETRON
  10. GABAPENTIN. [Concomitant]
     Active Substance: GABAPENTIN
  11. BAMLANIVIMAB. [Suspect]
     Active Substance: BAMLANIVIMAB
     Indication: COVID-19
     Dosage: ?          OTHER FREQUENCY:ONCE;?
     Route: 042
     Dates: start: 20210217, end: 20210217
  12. PRALUENT [Concomitant]
     Active Substance: ALIROCUMAB

REACTIONS (1)
  - Pneumonia [None]

NARRATIVE: CASE EVENT DATE: 20210217
